FAERS Safety Report 21212469 (Version 1)
Quarter: 2022Q3

REPORT INFORMATION
  Report Type: Spontaneous
  Country: US (occurrence: None)
  Receive Date: 20220812
  Receipt Date: 20220812
  Transmission Date: 20221027
  Serious: Yes (Other)
  Sender: FDA-Public Use
  Company Number: None

PATIENT
  Age: 61 Year
  Sex: Male

DRUGS (1)
  1. HUMIRA [Suspect]
     Active Substance: ADALIMUMAB
     Indication: Crohn^s disease
     Dosage: OTHER FREQUENCY : EVERY 7 DAYS;?
     Route: 058
     Dates: start: 20170801

REACTIONS (3)
  - Oral disorder [None]
  - Bite [None]
  - Skin exfoliation [None]

NARRATIVE: CASE EVENT DATE: 20220812
